FAERS Safety Report 18097958 (Version 2)
Quarter: 2020Q3

REPORT INFORMATION
  Report Type: Spontaneous
  Country: KR (occurrence: KR)
  Receive Date: 20200731
  Receipt Date: 20200821
  Transmission Date: 20201103
  Serious: Yes (Other)
  Sender: FDA-Public Use
  Company Number: KR-TEVA-2020-KR-1808908

PATIENT
  Age: 26 Year
  Sex: Male

DRUGS (1)
  1. ZYGARD [Suspect]
     Active Substance: DUTASTERIDE
     Indication: ALOPECIA
     Route: 048

REACTIONS (1)
  - Cerebral venous sinus thrombosis [Recovered/Resolved]
